FAERS Safety Report 12646239 (Version 1)
Quarter: 2016Q3

REPORT INFORMATION
  Report Type: Spontaneous
  Country: US (occurrence: US)
  Receive Date: 20160811
  Receipt Date: 20160811
  Transmission Date: 20161109
  Serious: No
  Sender: FDA-Public Use
  Company Number: US-ASTRAZENECA-2016SE82614

PATIENT

DRUGS (2)
  1. OMEPROXILE [Suspect]
     Active Substance: OMEPRAZOLE
     Route: 048
  2. NEXIUM [Suspect]
     Active Substance: ESOMEPRAZOLE MAGNESIUM
     Route: 048

REACTIONS (3)
  - Gastrooesophageal reflux disease [Unknown]
  - Anxiety [Unknown]
  - Panic attack [Unknown]
